FAERS Safety Report 9331261 (Version 1)
Quarter: 2013Q2

REPORT INFORMATION
  Report Type: Spontaneous
  Country: GB (occurrence: None)
  Receive Date: 20130531
  Receipt Date: 20130531
  Transmission Date: 20140414
  Serious: Yes (Hospitalization)
  Sender: FDA-Public Use
  Company Number: MET20130006

PATIENT
  Age: 66 Year
  Sex: Female

DRUGS (4)
  1. METFORMIN [Suspect]
     Indication: TYPE 2 DIABETES MELLITUS
     Dosage: 2 IN 1 D
     Route: 048
  2. RAMIPRIL [Suspect]
     Indication: HYPERTENSION
     Dosage: 1 IN 1 D
     Route: 048
  3. BENDROFLUMETHAZIDE (BENDROFLUMETHIAZIDE) (2.5 MILLIGRAM, UNKNOWN) (BENDROFLUMETHIAZIDE) [Concomitant]
  4. SIMVASTATIN (SIMVASTATIN) (40 MILLIGRAM, UNKNOWN) (SIMVASTATIN) [Concomitant]

REACTIONS (21)
  - Lactic acidosis [None]
  - Diarrhoea [None]
  - Vomiting [None]
  - Abdominal pain [None]
  - Hypothermia [None]
  - Hypoglycaemia [None]
  - Hyperkalaemia [None]
  - Electrocardiogram P wave abnormal [None]
  - Electrocardiogram T wave abnormal [None]
  - Electrocardiogram abnormal [None]
  - Bradycardia [None]
  - Pulseless electrical activity [None]
  - Cardiac arrest [None]
  - Unresponsive to stimuli [None]
  - Continuous haemodiafiltration [None]
  - Blood sodium decreased [None]
  - Shock [None]
  - Cellulitis [None]
  - Sepsis [None]
  - Renal failure acute [None]
  - Toxicity to various agents [None]
